FAERS Safety Report 26188002 (Version 1)
Quarter: 2025Q4

REPORT INFORMATION
  Report Type: Spontaneous
  Country: US (occurrence: US)
  Receive Date: 20251222
  Receipt Date: 20251222
  Transmission Date: 20260118
  Serious: No
  Sender: TEIKOKU
  Company Number: US-Teikoku Pharma USA-TPU2023-00029

PATIENT
  Age: 54 Year
  Sex: Female
  Weight: 108.86 kg

DRUGS (7)
  1. LIDOCAINE PATCH [Suspect]
     Active Substance: LIDOCAINE
     Dates: start: 20230107
  2. LIDODERM [Suspect]
     Active Substance: LIDOCAINE
     Indication: Accident at work
     Route: 061
     Dates: start: 20230107, end: 20230108
  3. TYLENOL [Concomitant]
     Active Substance: ACETAMINOPHEN
  4. ADVIL [Concomitant]
     Active Substance: IBUPROFEN
  5. CALCIUM CITRATE [Concomitant]
     Active Substance: CALCIUM CITRATE
  6. One a Day Multivitamins [Concomitant]
  7. THERATEARS [Concomitant]
     Active Substance: CARBOXYMETHYLCELLULOSE SODIUM
     Indication: Dry eye
     Dosage: ONE DROP IN EACH EYE FOUR TIMES DAILY

REACTIONS (4)
  - Gait inability [Unknown]
  - Product availability issue [Not Recovered/Not Resolved]
  - Pain [Not Recovered/Not Resolved]
  - Pain [Unknown]

NARRATIVE: CASE EVENT DATE: 20251201
